FAERS Safety Report 6307896-7 (Version None)
Quarter: 2009Q3

REPORT INFORMATION
  Report Type: 
  Country: None (occurrence: None)
  Receive Date: 20090813
  Receipt Date: 20090805
  Transmission Date: 20100115
  Serious: Yes (Other)
  Sender: FDA-Public Use
  Company Number: US-SP-2009-03375

PATIENT
  Age: 65 Year
  Sex: Male

DRUGS (1)
  1. BCG  THERAPEUTICS [Suspect]
     Indication: BLADDER CANCER
     Route: 043

REACTIONS (9)
  - BLADDER TRANSITIONAL CELL CARCINOMA [None]
  - CHILLS [None]
  - HILAR LYMPHADENOPATHY [None]
  - LUNG NEOPLASM [None]
  - LYMPHADENOPATHY MEDIASTINAL [None]
  - NIGHT SWEATS [None]
  - PYREXIA [None]
  - RENAL MASS [None]
  - WHITE BLOOD CELL COUNT INCREASED [None]
